FAERS Safety Report 5793508-8 (Version None)
Quarter: 2008Q2

REPORT INFORMATION
  Report Type: 
  Country: None (occurrence: None)
  Receive Date: 20080627
  Receipt Date: 20080618
  Transmission Date: 20081010
  Serious: Yes (Other)
  Sender: FDA-Public Use
  Company Number: MX-JNJFOC-20080604911

PATIENT
  Age: 25 Year
  Sex: Female

DRUGS (3)
  1. RISPERDAL CONSTA [Suspect]
     Indication: BIPOLAR DISORDER
     Route: 030
  2. RISPERDAL [Concomitant]
  3. VALPROATE SODIUM [Concomitant]
     Route: 065

REACTIONS (2)
  - ANXIETY [None]
  - EYE ROLLING [None]
